FAERS Safety Report 4461299-9 (Version None)
Quarter: 2004Q3

REPORT INFORMATION
  Report Type: 
  Country: None (occurrence: None)
  Receive Date: 20040928
  Receipt Date: 20040830
  Transmission Date: 20050211
  Serious: Yes (Hospitalization)
  Sender: FDA-Public Use
  Company Number: JP-GLAXOSMITHKLINE-B0344294A

PATIENT
  Age: 69 Year
  Sex: Female
  Weight: 32 kg

DRUGS (3)
  1. VALTREX [Suspect]
     Indication: KERATITIS HERPETIC
     Dosage: 1000MG THREE TIMES PER DAY
     Route: 048
     Dates: start: 20040827, end: 20040829
  2. CEFZON [Suspect]
     Indication: BACTERIAL CORNEAL ULCER
     Route: 048
     Dates: start: 20040827, end: 20040829
  3. ZOVIRAX [Concomitant]
     Indication: KERATITIS HERPETIC
     Route: 031
     Dates: start: 20040827, end: 20040906

REACTIONS (7)
  - ABNORMAL BEHAVIOUR [None]
  - DEPRESSED LEVEL OF CONSCIOUSNESS [None]
  - DISORIENTATION [None]
  - DRUG TOXICITY [None]
  - HEADACHE [None]
  - OVERDOSE [None]
  - SPEECH DISORDER [None]
